FAERS Safety Report 7657076-8 (Version None)
Quarter: 2011Q3

REPORT INFORMATION
  Report Type: 
  Country: None (occurrence: None)
  Receive Date: 20110804
  Receipt Date: 20100719
  Transmission Date: 20111222
  Serious: No
  Sender: FDA-Public Use
  Company Number: US-GLAXOSMITHKLINE-A0871165A

PATIENT
  Age: 87 Year
  Sex: Male

DRUGS (5)
  1. CALCIUM ACETATE [Concomitant]
  2. ADVAIR DISKUS 100/50 [Suspect]
     Indication: ASTHMA
     Dosage: 1PUFF AT NIGHT
     Route: 055
  3. THYROID MEDICATION [Concomitant]
  4. ADVAIR DISKUS 100/50 [Suspect]
     Dosage: 1PUFF IN THE MORNING
     Route: 055
  5. BLOOD PRESSURE MEDICATION [Concomitant]

REACTIONS (2)
  - CHEST DISCOMFORT [None]
  - DRUG INEFFECTIVE [None]
